FAERS Safety Report 8791465 (Version 1)
Quarter: 2012Q4

REPORT INFORMATION
  Report Type: Spontaneous
  Country: US (occurrence: None)
  Receive Date: 20120914
  Receipt Date: 20120914
  Transmission Date: 20130627
  Serious: Yes (Hospitalization)
  Sender: FDA-Public Use
  Company Number: None

PATIENT
  Age: 79 Year
  Sex: Female
  Weight: 68.95 kg

DRUGS (1)
  1. BONIVA [Suspect]
     Dates: start: 20070920, end: 20120309

REACTIONS (3)
  - Walking aid user [None]
  - Joint injury [None]
  - Therapy cessation [None]
